FAERS Safety Report 13762486 (Version 1)
Quarter: 2017Q3

REPORT INFORMATION
  Report Type: Spontaneous
  Country: US (occurrence: US)
  Receive Date: 20170718
  Receipt Date: 20170718
  Transmission Date: 20171127
  Serious: No
  Sender: FDA-Public Use
  Company Number: US-PFIZER INC-2017031893

PATIENT
  Age: 72 Year
  Sex: Female

DRUGS (6)
  1. IBRANCE [Suspect]
     Active Substance: PALBOCICLIB
     Indication: BREAST CANCER FEMALE
     Dosage: 125 MG, CYCLIC (FOR 21 DAYS REPEAT EVERY 28 DAYS 1 WEEK OFF)
     Route: 048
  2. ALTACE [Concomitant]
     Active Substance: RAMIPRIL
     Dosage: 5 MG, DAILY
     Route: 048
     Dates: start: 20161025
  3. VALTREX [Concomitant]
     Active Substance: VALACYCLOVIR HYDROCHLORIDE
     Dosage: 500 MG, DAILY
     Route: 048
     Dates: start: 20160701
  4. KENALOG [Concomitant]
     Active Substance: TRIAMCINOLONE ACETONIDE
     Indication: MOUTH ULCERATION
     Dosage: UNK, 3X/DAY (DENT 5 GR 2, 1 APPLICATION TO TEETH 3X A DAY)
     Route: 004
     Dates: start: 20160701
  5. IBRANCE [Suspect]
     Active Substance: PALBOCICLIB
     Indication: MALIGNANT PLEURAL EFFUSION
  6. TESSALON [Concomitant]
     Active Substance: BENZONATATE
     Indication: COUGH
     Dosage: 100 MG, AS NEEDED EVERY 6 HOURS
     Route: 048
     Dates: start: 20160919

REACTIONS (1)
  - Neoplasm recurrence [Unknown]
